FAERS Safety Report 11398794 (Version 2)
Quarter: 2017Q2

REPORT INFORMATION
  Report Type: Spontaneous
  Country: US (occurrence: US)
  Receive Date: 20150820
  Receipt Date: 20170403
  Transmission Date: 20170829
  Serious: Yes (Other)
  Sender: FDA-Public Use
  Company Number: US-ELI_LILLY_AND_COMPANY-US201508003674

PATIENT
  Sex: Female

DRUGS (2)
  1. CYMBALTA [Suspect]
     Active Substance: DULOXETINE HYDROCHLORIDE
     Indication: PAIN
     Dosage: UNK, UNKNOWN
     Route: 065
  2. CYMBALTA [Suspect]
     Active Substance: DULOXETINE HYDROCHLORIDE
     Indication: DEPRESSION
     Dosage: 60 MG, UNKNOWN
     Route: 065
     Dates: start: 20100225

REACTIONS (14)
  - Arthralgia [Unknown]
  - Hyperhidrosis [Unknown]
  - Palpitations [Unknown]
  - Tremor [Unknown]
  - Headache [Unknown]
  - Drug withdrawal syndrome [Unknown]
  - Memory impairment [Unknown]
  - Suicidal ideation [Unknown]
  - Mood swings [Unknown]
  - Feeling abnormal [Unknown]
  - Paraesthesia [Unknown]
  - Agitation [Unknown]
  - Nightmare [Unknown]
  - Anxiety [Unknown]
